FAERS Safety Report 14624385 (Version 1)
Quarter: 2018Q1

REPORT INFORMATION
  Report Type: Spontaneous
  Country: US (occurrence: US)
  Receive Date: 20180310
  Receipt Date: 20180310
  Transmission Date: 20180509
  Serious: Yes (Other)
  Sender: FDA-Public Use
  Company Number: None

PATIENT
  Age: 15 Year
  Sex: Female
  Weight: 60.78 kg

DRUGS (1)
  1. NEXPLANON [Suspect]
     Active Substance: ETONOGESTREL
     Dates: start: 20180108

REACTIONS (5)
  - Implant site infection [None]
  - Drug ineffective [None]
  - Wound [None]
  - Abscess [None]
  - Medical device removal [None]

NARRATIVE: CASE EVENT DATE: 20180308
